FAERS Safety Report 15101781 (Version 1)
Quarter: 2018Q3

REPORT INFORMATION
  Report Type: Spontaneous
  Country: GB (occurrence: GB)
  Receive Date: 20180703
  Receipt Date: 20180703
  Transmission Date: 20181010
  Serious: Yes (Hospitalization, Other)
  Sender: FDA-Public Use
  Company Number: GB-ASTRAZENECA-2018SE84696

PATIENT
  Sex: Female

DRUGS (1)
  1. DAPAGLIFLOZIN. [Suspect]
     Active Substance: DAPAGLIFLOZIN
     Indication: TYPE 2 DIABETES MELLITUS
     Route: 048
     Dates: start: 201709

REACTIONS (6)
  - Weight decreased [Unknown]
  - Diabetic ketoacidosis [Unknown]
  - Pain [Unknown]
  - Arthralgia [Unknown]
  - Diabetic coma [Unknown]
  - Fall [Unknown]

NARRATIVE: CASE EVENT DATE: 201802
